FAERS Safety Report 9352950 (Version 1)
Quarter: 2013Q2

REPORT INFORMATION
  Report Type: Spontaneous
  Country: US (occurrence: None)
  Receive Date: 20130614
  Receipt Date: 20130614
  Transmission Date: 20140414
  Serious: No
  Sender: FDA-Public Use
  Company Number: None

PATIENT
  Sex: Male

DRUGS (1)
  1. FLUOCINONIDE [Suspect]
     Indication: SEBORRHOEIC KERATOSIS
     Dosage: 2XDAILY.
     Dates: start: 20130413, end: 20130416

REACTIONS (1)
  - Rash [None]
